FAERS Safety Report 5007289-9 (Version None)
Quarter: 2006Q2

REPORT INFORMATION
  Report Type: 
  Country: None (occurrence: None)
  Receive Date: 20060519
  Receipt Date: 20060519
  Transmission Date: 20061013
  Serious: Yes (Other)
  Sender: FDA-Public Use
  Company Number: None

PATIENT
  Age: 77 Year
  Sex: Female
  Weight: 70.3075 kg

DRUGS (2)
  1. ELOXATIN [Suspect]
     Indication: COLON CANCER
     Dosage: 150 MG EVERY THREE WEEKS  IV
     Route: 042
     Dates: start: 20060306, end: 20060505
  2. ELOXATIN [Suspect]
     Indication: COLON CANCER
     Dates: start: 20060306, end: 20060505

REACTIONS (4)
  - COUGH [None]
  - INFUSION RELATED REACTION [None]
  - SENSATION OF FOREIGN BODY [None]
  - WHEEZING [None]
